FAERS Safety Report 5745699-2 (Version None)
Quarter: 2008Q2

REPORT INFORMATION
  Report Type: 
  Country: None (occurrence: None)
  Receive Date: 20080521
  Receipt Date: 20080514
  Transmission Date: 20081010
  Serious: Yes (Hospitalization)
  Sender: FDA-Public Use
  Company Number: JP-BOEHRINGER INGELHEIM GMBH, GERMANY-2008-BP-06609NB

PATIENT
  Age: 70 Year
  Sex: Female

DRUGS (7)
  1. MOBIC [Suspect]
     Indication: ANALGESIA
     Route: 048
     Dates: end: 20080424
  2. LIVACT [Concomitant]
     Route: 048
  3. URSO 250 [Concomitant]
     Route: 048
  4. LASIX [Concomitant]
     Route: 065
  5. ALDACTONE [Concomitant]
     Route: 048
  6. AMARYL [Concomitant]
     Route: 048
  7. GASTER D [Concomitant]
     Route: 048

REACTIONS (1)
  - BLEEDING TIME PROLONGED [None]
